FAERS Safety Report 7360699-7 (Version None)
Quarter: 2011Q1

REPORT INFORMATION
  Report Type: 
  Country: None (occurrence: None)
  Receive Date: 20110318
  Receipt Date: 20110311
  Transmission Date: 20110831
  Serious: Yes (Hospitalization)
  Sender: FDA-Public Use
  Company Number: US-BRISTOL-MYERS SQUIBB COMPANY-15472566

PATIENT
  Age: 66 Year
  Sex: Male

DRUGS (16)
  1. DULCOLAX [Concomitant]
  2. PACLITAXEL [Suspect]
     Indication: NON-SMALL CELL LUNG CANCER
     Dosage: ON DAY 1,22
     Route: 042
     Dates: start: 20100921
  3. FENTANYL [Concomitant]
  4. ZOFRAN [Concomitant]
  5. CETUXIMAB [Suspect]
     Indication: NON-SMALL CELL LUNG CANCER
     Dosage: 400MG/M2:21SEP2010; 250MG/M2:05OCT2010 TO UNK (CYCLE 1 DAY 15)
     Route: 042
     Dates: start: 20100921
  6. DILAUDID [Concomitant]
  7. COLACE [Concomitant]
  8. COMBIVENT [Concomitant]
  9. CARBOPLATIN [Suspect]
     Indication: NON-SMALL CELL LUNG CANCER
     Dosage: 1DF=6 D/F AUC; ON DAY 1,22
     Route: 042
     Dates: start: 20100921
  10. BENADRYL [Concomitant]
  11. DOXYCYCLINE [Concomitant]
  12. PREDNISONE TAB [Concomitant]
     Route: 047
  13. HYDROCODONE [Concomitant]
  14. OMEPRAZOLE [Concomitant]
  15. VITAMIN D [Concomitant]
  16. COMPAZINE [Concomitant]

REACTIONS (7)
  - PYREXIA [None]
  - BLOOD CREATINE PHOSPHOKINASE INCREASED [None]
  - OVERDOSE [None]
  - DEPRESSED LEVEL OF CONSCIOUSNESS [None]
  - HYPOTENSION [None]
  - RESPIRATORY FAILURE [None]
  - TROPONIN I INCREASED [None]
